FAERS Safety Report 6856844-X (Version None)
Quarter: 2010Q3

REPORT INFORMATION
  Report Type: 
  Country: None (occurrence: None)
  Receive Date: 20100719
  Receipt Date: 20100716
  Transmission Date: 20110219
  Serious: Yes (Other)
  Sender: FDA-Public Use
  Company Number: US-BRISTOL-MYERS SQUIBB COMPANY-15187214

PATIENT
  Age: 63 Year
  Sex: Female

DRUGS (6)
  1. AVAPRO [Suspect]
     Indication: HYPERTENSION
     Dosage: START DATE PRIOR TO APR2010
     Dates: end: 20100709
  2. ACCUPRIL [Concomitant]
  3. ATENOLOL [Concomitant]
  4. ASPIRIN [Concomitant]
  5. FISH OIL [Concomitant]
  6. XANAX [Concomitant]

REACTIONS (2)
  - HYPERKALAEMIA [None]
  - VENTRICULAR EXTRASYSTOLES [None]
